FAERS Safety Report 8504495-3 (Version None)
Quarter: 2012Q3

REPORT INFORMATION
  Report Type: 
  Country: None (occurrence: None)
  Receive Date: 20120711
  Receipt Date: 20120705
  Transmission Date: 20120928
  Serious: Yes (Other)
  Sender: FDA-Public Use
  Company Number: JP-JNJFOC-20120704144

PATIENT
  Sex: Female
  Weight: 45 kg

DRUGS (19)
  1. PREDNISOLONE [Concomitant]
     Indication: RHEUMATOID ARTHRITIS
     Route: 048
     Dates: start: 20111017, end: 20120618
  2. XYZAL [Concomitant]
     Route: 048
  3. ZOLPIDEM [Concomitant]
     Route: 048
  4. FOLIAMIN [Concomitant]
     Indication: PROPHYLAXIS
     Route: 048
  5. RECALBON [Concomitant]
     Route: 048
  6. METHOTREXATE [Concomitant]
     Indication: RHEUMATOID ARTHRITIS
     Route: 048
     Dates: end: 20111130
  7. CLARITHROMYCIN [Concomitant]
     Route: 048
  8. METOPROLOL TARTRATE [Concomitant]
     Indication: PROPHYLAXIS
     Route: 048
  9. GOLIMUMAB [Suspect]
     Route: 058
     Dates: start: 20111130, end: 20111212
  10. SELBEX [Concomitant]
     Indication: PROPHYLAXIS
     Route: 048
  11. PROGRAF [Concomitant]
     Indication: RHEUMATOID ARTHRITIS
  12. AMPHOTERICIN B [Concomitant]
     Indication: PROPHYLAXIS
     Route: 048
  13. HIRUDOID (HEPARINOID) [Concomitant]
     Route: 062
  14. GOLIMUMAB [Suspect]
     Indication: RHEUMATOID ARTHRITIS
     Route: 058
     Dates: start: 20111017
  15. ENZYME PREPARATIONS [Concomitant]
     Indication: PROPHYLAXIS
     Route: 048
  16. OPALMON [Concomitant]
     Indication: PROPHYLAXIS
     Route: 048
  17. LOXONIN [Concomitant]
     Indication: RHEUMATOID ARTHRITIS
     Route: 048
     Dates: end: 20120206
  18. NEXIUM [Concomitant]
     Indication: PROPHYLAXIS
     Route: 048
  19. CARVEDILOL [Concomitant]
     Route: 048

REACTIONS (1)
  - INTERSTITIAL LUNG DISEASE [None]
